FAERS Safety Report 8876549 (Version 7)
Quarter: 2016Q1

REPORT INFORMATION
  Report Type: Report from Study
  Country: RO (occurrence: RO)
  Receive Date: 20121030
  Receipt Date: 20160224
  Transmission Date: 20160526
  Serious: Yes (Other)
  Sender: FDA-Public Use
  Company Number: RO-ROCHE-1148988

PATIENT
  Age: 54 Year
  Sex: Male
  Weight: 78 kg

DRUGS (21)
  1. RITUXIMAB [Suspect]
     Active Substance: RITUXIMAB
     Indication: B-CELL LYMPHOMA
     Dosage: DATE OF LAST DOSE PRIOR TO SECOND EPISODE OF SAE: 08/NOV/2012
     Route: 058
     Dates: start: 20121018
  2. PARACETAMOL [Concomitant]
     Active Substance: ACETAMINOPHEN
     Route: 065
     Dates: start: 20120927, end: 20120927
  3. PARACETAMOL [Concomitant]
     Active Substance: ACETAMINOPHEN
     Indication: UPPER RESPIRATORY TRACT INFECTION
     Route: 065
     Dates: start: 20121125, end: 20121126
  4. PARACETAMOL [Concomitant]
     Active Substance: ACETAMINOPHEN
     Route: 065
     Dates: start: 20121018, end: 20121018
  5. DICLOFENAC [Concomitant]
     Active Substance: DICLOFENAC
     Route: 065
     Dates: start: 20131121
  6. PARACETAMOL [Concomitant]
     Active Substance: ACETAMINOPHEN
     Route: 065
     Dates: start: 20121227, end: 20121227
  7. ACYCLOVIR. [Concomitant]
     Active Substance: ACYCLOVIR
     Indication: ORAL HERPES
     Route: 061
     Dates: start: 20121217, end: 20121226
  8. DICLOFENAC [Concomitant]
     Active Substance: DICLOFENAC
     Indication: TOOTH INFECTION
     Route: 065
     Dates: start: 20130131, end: 20130202
  9. AERIUS [Concomitant]
     Active Substance: DESLORATADINE
     Dosage: SUNSEQUENT DOSE ON 27/SEP/2012, 18/OCT/2012, 08/NOV/2012, 27/NOV/2012, 27/DEC/2012, 17/JAN/2013, 07/
     Route: 065
     Dates: start: 20130531, end: 20130531
  10. RITUXIMAB [Suspect]
     Active Substance: RITUXIMAB
     Indication: B-CELL LYMPHOMA
     Dosage: DATE OF LAST DOSE PRIOR TO OTHER EPISODE OF SAE: 27/SEP/2012
     Route: 042
     Dates: start: 20120927
  11. HYDROCORTISONE HEMISUCCINATE [Concomitant]
     Active Substance: HYDROCORTISONE HEMISUCCINATE
     Dosage: SUBSEQUENT DOSE FROM 27/DEC/2012 TO 30/DEC/2012, 29/NOV/2012 TO 03/DEC/2012, 08/NOV/2012 TO 12/NOV/2
     Route: 065
     Dates: start: 20121018, end: 20121022
  12. ALLOPURINOLUM [Concomitant]
     Dosage: SUBSEQUENT DOSES ON 27/SEP/2012 TO 01/OCT/2012, 18/OCT/2012 TO 22/OCT/2012, 29/NOV/2012 TO 03/DEC/20
     Route: 065
     Dates: start: 20121112
  13. PARACETAMOL [Concomitant]
     Active Substance: ACETAMINOPHEN
     Route: 065
     Dates: start: 20130531, end: 20130531
  14. PARACETAMOL [Concomitant]
     Active Substance: ACETAMINOPHEN
     Dosage: RECEIVED SUBSEQUENT DOSES ON 07/FEB/2013, 01/MAR/2013, 30/MAY/2013, 18/JUL/2013, 18/SEP/2013, 10/DEC
     Route: 065
     Dates: start: 20130117, end: 20150612
  15. VITAMIN C [Concomitant]
     Active Substance: ASCORBIC ACID
     Indication: UPPER RESPIRATORY TRACT INFECTION
     Route: 065
     Dates: start: 20121125, end: 20121127
  16. AMOXICILLIN. [Concomitant]
     Active Substance: AMOXICILLIN
     Indication: LOWER RESPIRATORY TRACT INFECTION
     Route: 065
     Dates: start: 20130523, end: 20130529
  17. PARACETAMOL [Concomitant]
     Active Substance: ACETAMINOPHEN
     Route: 065
     Dates: start: 20121108, end: 20121129
  18. AMOXICILLIN. [Concomitant]
     Active Substance: AMOXICILLIN
     Route: 065
     Dates: start: 20131121
  19. ONDANSETRONUM [Concomitant]
     Dosage: SUBSEQUENT DOSES ON 18/OCT/2012, 08/NOV/2012, 29/NOV/2012, 27/DEC/2012
     Route: 065
     Dates: start: 20120927, end: 20130117
  20. PARACETAMOL [Concomitant]
     Active Substance: ACETAMINOPHEN
     Indication: HEADACHE
     Route: 065
     Dates: start: 20121004, end: 20121007
  21. HYDROCORTISONE HEMISUCCINATE [Concomitant]
     Active Substance: HYDROCORTISONE HEMISUCCINATE
     Route: 065
     Dates: start: 20120927, end: 20121001

REACTIONS (1)
  - Injection site induration [Recovered/Resolved]

NARRATIVE: CASE EVENT DATE: 20121018
